FAERS Safety Report 10206867 (Version 2)
Quarter: 2014Q2

REPORT INFORMATION
  Report Type: Spontaneous
  Country: US (occurrence: US)
  Receive Date: 20140530
  Receipt Date: 20140625
  Transmission Date: 20141212
  Serious: Yes (Other)
  Sender: FDA-Public Use
  Company Number: PHEH2014US010675

PATIENT
  Age: 68 Year
  Sex: Female
  Weight: 61.68 kg

DRUGS (15)
  1. TOBI [Suspect]
     Dosage: 4 DF, Q12H
     Route: 055
  2. LOSARTAN POTASSIUM [Suspect]
     Indication: HYPERTENSION
     Dosage: 25 MG, DAILY
     Route: 048
     Dates: start: 20140217, end: 20140422
  3. DIOVAN [Suspect]
     Indication: HYPERTENSION
     Dosage: 0.5 DF, DAILY
     Dates: start: 20140422
  4. DIOVAN [Suspect]
     Dosage: 1 DF, DAILY
     Dates: end: 20140515
  5. NAPROXEN [Concomitant]
     Dosage: 500 MG, BID WITH FOOD
     Route: 048
  6. ASPIRIN [Concomitant]
     Dosage: 81 MG, DAILY
     Route: 048
  7. DIPHENHYDRAMINE [Concomitant]
     Dosage: 50 MG, BID, AS NEEDED
     Route: 048
  8. CYCLOBENZAPRINE [Concomitant]
     Dosage: 10MG OR 20 MG DF, DAILY
     Route: 048
  9. OMEPRAZOLE [Concomitant]
     Dosage: 20 MG, QD (BEFORE MEAL)
     Route: 048
  10. VITAMIN E [Concomitant]
     Dosage: 400 U, DAILY
     Route: 048
  11. VITAMIIN C [Concomitant]
     Dosage: 1000 MG, DAILY
     Route: 048
  12. VITAMIN D [Concomitant]
     Dosage: 2000 U, DAILY
     Route: 048
  13. XOPENEX HFA [Concomitant]
     Dosage: 90 UG, Q6H
     Route: 055
  14. QVAR [Concomitant]
     Dosage: 160 UG, BID
     Route: 055
  15. OXYGEN [Concomitant]
     Dosage: 2 OR 3 LITER, QD
     Route: 045

REACTIONS (3)
  - Blood pressure increased [Unknown]
  - Diarrhoea [Unknown]
  - Blood pressure inadequately controlled [Unknown]
